FAERS Safety Report 7530563-9 (Version None)
Quarter: 2011Q2

REPORT INFORMATION
  Report Type: 
  Country: None (occurrence: None)
  Receive Date: 20110607
  Receipt Date: 20091119
  Transmission Date: 20111010
  Serious: Yes (Hospitalization, Other)
  Sender: FDA-Public Use
  Company Number: US-BAYER-200939948NA

PATIENT
  Age: 49 Year
  Sex: Male
  Weight: 109 kg

DRUGS (33)
  1. ACETYLSALICYLIC ACID SRT [Concomitant]
     Dosage: 325 MG, QD
     Route: 048
  2. NEURONTIN [Concomitant]
     Dosage: 2 MG, HS
     Route: 048
  3. REQUIP [Concomitant]
     Dosage: 2 MG, HS
     Route: 048
  4. PLAVIX [Concomitant]
     Route: 048
  5. RED BLOOD CELLS [Concomitant]
  6. VANCOMYCIN [Concomitant]
     Dosage: 500 MG, UNK
     Route: 042
     Dates: start: 20070410, end: 20070410
  7. POLYMYCIN B SULFATE [Concomitant]
     Dosage: 500000 U, UNK
     Route: 042
     Dates: start: 20070410, end: 20070410
  8. ANECTINE [Concomitant]
     Dosage: 160 UNK, UNK
     Route: 042
     Dates: start: 20070410, end: 20070410
  9. TRASYLOL [Suspect]
     Dosage: 200 ML, UNK, LOADING DOSE
     Route: 042
     Dates: start: 20070410, end: 20070410
  10. PREVACID [Concomitant]
     Dosage: 30 MG, QD
     Route: 048
  11. TYLENOL REGULAR [Concomitant]
     Dosage: UNK UNK, PRN
     Route: 048
  12. REGLAN [Concomitant]
     Dosage: 10 MG, TID
     Route: 048
  13. GLYBURIDE [Concomitant]
     Dosage: 5 MG, QD
     Route: 048
     Dates: start: 20070101
  14. AMARIL VACCINE [Concomitant]
     Dosage: UNK
     Dates: start: 19920101
  15. DARVOCET-N 50 [Concomitant]
     Dosage: UNK UNK, Q4HR PRN
     Route: 048
  16. MICARDIS [Concomitant]
     Dosage: 40 MG, QD
     Route: 048
  17. EPINEPHRINE [Concomitant]
     Dosage: 60 ML, UNK, 1MG/ML
     Route: 042
     Dates: start: 20070410, end: 20070410
  18. PAVULON [Concomitant]
     Dosage: 10 UNK, UNK
     Route: 042
     Dates: start: 20070410, end: 20070410
  19. LORAZEPAM [Concomitant]
     Dosage: 1 MG, PRN
     Route: 048
  20. VASOPRESSIN [Concomitant]
     Dosage: 20 U, UNK
     Route: 042
     Dates: start: 20070410, end: 20070410
  21. VERSED [Concomitant]
     Dosage: 10 MG, UNK
     Route: 042
     Dates: start: 20070410, end: 20070410
  22. PROTAMINE SULFATE [Concomitant]
     Dosage: 300 MG, UNK
     Route: 042
     Dates: start: 20070410, end: 20070410
  23. TRASYLOL [Suspect]
     Indication: CORONARY ARTERY BYPASS
     Dosage: 1 ML, UNK, TEST DOSE
     Route: 042
     Dates: start: 20070410, end: 20070410
  24. HEPARIN [Concomitant]
     Dosage: 2500 U, UNK
     Route: 042
     Dates: start: 20070410, end: 20070410
  25. COREG [Concomitant]
     Dosage: 6.25 MG, BID
     Route: 048
  26. PHENERGAN HCL [Concomitant]
     Dosage: 25 MG, QD
     Route: 048
  27. COZAAR [Concomitant]
     Dosage: 50 MG, QD
     Route: 048
  28. FORANE [Concomitant]
     Dosage: 9.8 UNK, UNK
     Dates: start: 20070410, end: 20070410
  29. ETOMIDATE [Concomitant]
     Dosage: 20 UNK, UNK
     Route: 042
     Dates: start: 20070410, end: 20070410
  30. INSULIN [Concomitant]
     Dosage: 5 U, UNK
     Route: 042
     Dates: start: 20070410
  31. HYDROCHLOROTHIAZIDE [Concomitant]
     Dosage: 25 MG, QAM
     Route: 048
  32. HECTOROL [Concomitant]
     Dosage: 2 MG, HS
     Route: 048
  33. LIDOCAINE [Concomitant]
     Dosage: 100 UNK, UNK
     Route: 042
     Dates: start: 20070410, end: 20070410

REACTIONS (9)
  - RENAL INJURY [None]
  - FEAR [None]
  - DEPRESSION [None]
  - ANXIETY [None]
  - PAIN [None]
  - UNEVALUABLE EVENT [None]
  - ANHEDONIA [None]
  - RENAL FAILURE [None]
  - INJURY [None]
